FAERS Safety Report 6793912-5 (Version None)
Quarter: 2010Q2

REPORT INFORMATION
  Report Type: 
  Country: None (occurrence: None)
  Receive Date: 20100624
  Receipt Date: 20090621
  Transmission Date: 20101027
  Serious: No
  Sender: FDA-Public Use
  Company Number: US-PFIZER INC-2009157756

PATIENT
  Sex: Male
  Weight: 117.9 kg

DRUGS (2)
  1. GEODON [Suspect]
     Indication: BIPOLAR DISORDER
     Dosage: 80 MG, 2X/DAY
     Dates: start: 20081201
  2. LITHIUM [Concomitant]
     Dosage: UNK

REACTIONS (2)
  - DISORIENTATION [None]
  - DIZZINESS [None]
